FAERS Safety Report 8026137 (Version 3)
Quarter: 2013Q3

REPORT INFORMATION
  Report Type: Spontaneous
  Country: FR (occurrence: FR)
  Receive Date: 20110708
  Receipt Date: 20130930
  Transmission Date: 20140515
  Serious: Yes (Death)
  Sender: FDA-Public Use
  Company Number: FR-ALEXION-A201101007

PATIENT
  Sex: Male

DRUGS (2)
  1. SOLIRIS 300MG [Suspect]
     Indication: TRANSPLANT REJECTION
     Dosage: UNK
     Route: 042
     Dates: start: 20110617
  2. SOLIRIS 300MG [Suspect]
     Indication: OFF LABEL USE
     Dosage: UNK
     Route: 042
     Dates: start: 20110629, end: 20110629

REACTIONS (3)
  - Septic shock [Fatal]
  - Multiple organ transplant rejection [Fatal]
  - Multi-organ failure [Fatal]
